FAERS Safety Report 24530662 (Version 2)
Quarter: 2024Q4

REPORT INFORMATION
  Report Type: Spontaneous
  Country: RU (occurrence: RU)
  Receive Date: 20241021
  Receipt Date: 20241119
  Transmission Date: 20250115
  Serious: Yes (Other)
  Sender: VERTEX
  Company Number: RU-VERTEX PHARMACEUTICALS-2024-016369

PATIENT
  Age: 6 Year
  Sex: Male
  Weight: 20 kg

DRUGS (3)
  1. TRIKAFTA [Suspect]
     Active Substance: ELEXACAFTOR\IVACAFTOR\TEZACAFTOR
     Indication: Cystic fibrosis
     Dosage: UNK
     Route: 065
     Dates: start: 2022, end: 2023
  2. DORNASE ALFA [Concomitant]
     Active Substance: DORNASE ALFA
     Indication: Sinusitis
     Dosage: SECOND DOSE PER DAY THROUGH NASAL CANNULAS
  3. URSODIOL [Concomitant]
     Active Substance: URSODIOL

REACTIONS (3)
  - Chronic rhinosinusitis with nasal polyps [Unknown]
  - Infective pulmonary exacerbation of cystic fibrosis [Unknown]
  - Drug ineffective [Unknown]

NARRATIVE: CASE EVENT DATE: 20230101
